FAERS Safety Report 11581930 (Version 1)
Quarter: 2015Q4

REPORT INFORMATION
  Report Type: Spontaneous
  Country: US (occurrence: US)
  Receive Date: 20151001
  Receipt Date: 20151001
  Transmission Date: 20160304
  Serious: Yes (Other)
  Sender: FDA-Public Use
  Company Number: US-ROCHE-666441

PATIENT
  Age: 50 Year
  Sex: Female

DRUGS (3)
  1. COPEGUS [Suspect]
     Active Substance: RIBAVIRIN
     Indication: HEPATITIS C
     Dosage: DIVIDED DOSES, FORM: ^PILLS^
     Route: 048
  2. XANAX [Concomitant]
     Active Substance: ALPRAZOLAM
     Route: 065
  3. PEGASYS [Suspect]
     Active Substance: PEGINTERFERON ALFA-2A
     Indication: HEPATITIS C
     Dosage: FORM: PRE-FILLED SYRINGE
     Route: 058

REACTIONS (13)
  - Autoimmune disorder [Unknown]
  - Diarrhoea [Not Recovered/Not Resolved]
  - Mental disorder [Not Recovered/Not Resolved]
  - Anger [Not Recovered/Not Resolved]
  - Irritability [Not Recovered/Not Resolved]
  - Suicidal ideation [Unknown]
  - Rash [Not Recovered/Not Resolved]
  - Fatigue [Recovering/Resolving]
  - Insomnia [Unknown]
  - Depression [Unknown]
  - Dementia [Not Recovered/Not Resolved]
  - Anger [Recovering/Resolving]
  - Thinking abnormal [Not Recovered/Not Resolved]

NARRATIVE: CASE EVENT DATE: 20091101
